FAERS Safety Report 16577377 (Version 4)
Quarter: 2019Q4

REPORT INFORMATION
  Report Type: Spontaneous
  Country: US (occurrence: US)
  Receive Date: 20190716
  Receipt Date: 20191007
  Transmission Date: 20200122
  Serious: Yes (Hospitalization, Other)
  Sender: FDA-Public Use
  Company Number: US-PFIZER INC-2018431284

PATIENT
  Age: 50 Year
  Sex: Male
  Weight: 81 kg

DRUGS (7)
  1. LYRICA [Suspect]
     Active Substance: PREGABALIN
     Indication: SCIATICA
     Dosage: 75 MG, 2X/DAY
     Route: 048
  2. LYRICA [Suspect]
     Active Substance: PREGABALIN
     Indication: NEUROPATHY PERIPHERAL
     Dosage: 150 MG, DAILY (TWO 75 MG CAPSULES A DAY BY MOUTH)
     Route: 048
  3. ALPRAZOLAM. [Concomitant]
     Active Substance: ALPRAZOLAM
     Indication: ANXIETY
     Dosage: 5 MG, DAILY (TWO 2 MG TABLETS AND ONE 1 MG BY MOUTH EACH DAY)
     Route: 048
     Dates: start: 2010
  4. LYRICA [Suspect]
     Active Substance: PREGABALIN
     Indication: VERTEBRAL FORAMINAL STENOSIS
     Dosage: 1 OR 2 EXTRA PILLS EVERY DAY
  5. FLEXERIL [Concomitant]
     Active Substance: CYCLOBENZAPRINE HYDROCHLORIDE
     Indication: BACK DISORDER
  6. INSULIN [Concomitant]
     Active Substance: INSULIN NOS
     Indication: BLOOD GLUCOSE INCREASED
     Dosage: 22 IU, 2X/DAY (22 UNITS IN THE MORNING AND 22 UNITS IN THE EVENING, SUBCUTANEOUS INJECTION)
     Route: 058
     Dates: start: 2010
  7. FLEXERIL [Concomitant]
     Active Substance: CYCLOBENZAPRINE HYDROCHLORIDE
     Indication: SCIATIC NERVE NEUROPATHY
     Dosage: 10 MG, 3X/DAY (10 MG TABLET BY MOUTH 3 TIMES A DAY)
     Route: 048
     Dates: start: 2010

REACTIONS (7)
  - Blood glucose decreased [Unknown]
  - Blood glucose increased [Unknown]
  - Headache [Recovering/Resolving]
  - Loss of consciousness [Unknown]
  - Drug dependence [Unknown]
  - Therapeutic product effect incomplete [Unknown]
  - Intentional product use issue [Unknown]

NARRATIVE: CASE EVENT DATE: 2019
